FAERS Safety Report 23872959 (Version 1)
Quarter: 2024Q2

REPORT INFORMATION
  Report Type: Spontaneous
  Country: US (occurrence: US)
  Receive Date: 20240520
  Receipt Date: 20240520
  Transmission Date: 20240716
  Serious: Yes (Hospitalization, Other)
  Sender: FDA-Public Use
  Company Number: US-GRAVITIPHARMA-GRA-2405-US-LIT-0136

PATIENT
  Age: 61 Year
  Sex: Female

DRUGS (6)
  1. BUPROPION HYDROCHLORIDE [Suspect]
     Active Substance: BUPROPION HYDROCHLORIDE
     Indication: Premenstrual syndrome
  2. FLUOXETINE [Suspect]
     Active Substance: FLUOXETINE HYDROCHLORIDE
     Indication: Premenstrual syndrome
  3. MEPERIDINE [Suspect]
     Active Substance: MEPERIDINE
     Indication: Premenstrual syndrome
     Dosage: ON POSTOPERATIVE DAY 1 FOR ONE DOSE FOR UNSPECIFIED INDICATION
     Route: 042
  4. METHYLENE BLUE ANHYDROUS [Suspect]
     Active Substance: METHYLENE BLUE ANHYDROUS
     Indication: Premenstrual syndrome
     Dosage: TWO DOSES WERE GIVEN ON POSTOPERATIVE DAY ZERO AND ONE DOSE ON POSTOPERATIVE DAY 1
     Route: 042
  5. METHYLENE BLUE ANHYDROUS [Suspect]
     Active Substance: METHYLENE BLUE ANHYDROUS
     Indication: Vasoplegia syndrome
  6. DOXORUBICIN [Concomitant]
     Active Substance: DOXORUBICIN
     Indication: Hodgkin^s disease

REACTIONS (2)
  - Serotonin syndrome [Unknown]
  - Drug interaction [Unknown]
